FAERS Safety Report 9772319 (Version 1)
Quarter: 2013Q4

REPORT INFORMATION
  Report Type: Spontaneous
  Country: RU (occurrence: RU)
  Receive Date: 20131219
  Receipt Date: 20131219
  Transmission Date: 20140711
  Serious: Yes (Other)
  Sender: FDA-Public Use
  Company Number: RU-009507513-1312RUS004998

PATIENT
  Sex: Female

DRUGS (1)
  1. NUVARING [Suspect]
     Dosage: UNK
     Route: 067
     Dates: start: 201212

REACTIONS (3)
  - Surgery [Unknown]
  - Hormone level abnormal [Unknown]
  - Breast disorder [Unknown]
